FAERS Safety Report 6385467-4 (Version None)
Quarter: 2009Q4

REPORT INFORMATION
  Report Type: 
  Country: None (occurrence: None)
  Receive Date: 20091002
  Receipt Date: 20080926
  Transmission Date: 20100525
  Serious: No
  Sender: FDA-Public Use
  Company Number: US-ASTRAZENECA-2008UW19428

PATIENT
  Age: 67 Year
  Sex: Female

DRUGS (6)
  1. ARIMIDEX [Suspect]
     Route: 048
     Dates: start: 20070101
  2. SYNTHROID [Concomitant]
  3. GABAPENTIN [Concomitant]
     Dates: start: 20080901
  4. METFORMIN [Concomitant]
  5. METOPROLOL [Concomitant]
  6. AVALIDE [Concomitant]
     Dosage: 300-12.5 MG

REACTIONS (6)
  - COLD SWEAT [None]
  - CONSTIPATION [None]
  - HOT FLUSH [None]
  - MUSCULOSKELETAL STIFFNESS [None]
  - NERVE INJURY [None]
  - PAIN IN EXTREMITY [None]
